FAERS Safety Report 4765667-7 (Version None)
Quarter: 2005Q3

REPORT INFORMATION
  Report Type: 
  Country: None (occurrence: None)
  Receive Date: 20050908
  Receipt Date: 20050908
  Transmission Date: 20060218
  Serious: Yes (Hospitalization)
  Sender: FDA-Public Use
  Company Number: None

PATIENT
  Age: 79 Year
  Sex: Female
  Weight: 90.7194 kg

DRUGS (3)
  1. DEPODUR [Suspect]
     Indication: ANAESTHESIA
     Dosage: 15 MG ONCE EPIDURAL
     Route: 008
     Dates: start: 20050906, end: 20050906
  2. DEPODUR [Suspect]
     Indication: ANALGESIC EFFECT
     Dosage: 15 MG ONCE EPIDURAL
     Route: 008
     Dates: start: 20050906, end: 20050906
  3. DEPODUR [Suspect]
     Indication: PREOPERATIVE CARE
     Dosage: 15 MG ONCE EPIDURAL
     Route: 008
     Dates: start: 20050906, end: 20050906

REACTIONS (2)
  - POST PROCEDURAL COMPLICATION [None]
  - RESPIRATORY RATE DECREASED [None]
